FAERS Safety Report 15929774 (Version 2)
Quarter: 2019Q1

REPORT INFORMATION
  Report Type: Spontaneous
  Country: EG (occurrence: EG)
  Receive Date: 20190206
  Receipt Date: 20190212
  Transmission Date: 20190417
  Serious: Yes (Life-Threatening)
  Sender: FDA-Public Use
  Company Number: EG-NOVOPROD-644816

PATIENT
  Age: 62 Year
  Sex: Male
  Weight: 130 kg

DRUGS (6)
  1. ATOR [Concomitant]
     Active Substance: ATORVASTATIN CALCIUM
     Indication: LIPIDS ABNORMAL
     Dosage: 1 TAB./NIGHT
     Route: 048
  2. CAPOTEN [Concomitant]
     Active Substance: CAPTOPRIL
     Indication: HYPERTENSION
     Dosage: 1/2 TAB.TWICE/DAY
     Route: 048
  3. NITROMACK [Concomitant]
     Indication: CORONARY ARTERY STENOSIS
     Dosage: TWICE/DAY
     Route: 048
  4. MIXTARD HUMAN 70/30 [Suspect]
     Active Substance: INSULIN HUMAN
     Indication: DIABETES MELLITUS
     Dosage: 110 IU, QD (60 U/MORNING + 50 U/NIGHT)
     Route: 058
  5. LASIX [Concomitant]
     Active Substance: FUROSEMIDE
     Indication: DIURETIC THERAPY
     Dosage: 1 TAB/MORNING
     Route: 048
  6. PROCORALAN [Concomitant]
     Active Substance: IVABRADINE
     Indication: CORONARY ARTERY STENOSIS
     Dosage: 2 TAB./DAY
     Route: 048

REACTIONS (1)
  - Cerebrovascular accident [Recovered/Resolved]

NARRATIVE: CASE EVENT DATE: 20180409
